FAERS Safety Report 8947375 (Version 3)
Quarter: 2012Q4

REPORT INFORMATION
  Report Type: 
  Country: US (occurrence: US)
  Receive Date: 20121205
  Receipt Date: 20121219
  Transmission Date: 20130627
  Serious: Yes (Life-Threatening, Hospitalization)
  Sender: FDA-Public Use
  Company Number: US-PFIZER INC-2012304214

PATIENT
  Age: 58 Year
  Sex: Female
  Weight: 119 kg

DRUGS (11)
  1. PROTONIX [Suspect]
     Dosage: 40 mg, 1x/day
     Route: 048
     Dates: start: 201210
  2. ZOLOFT [Suspect]
     Indication: DEPRESSION
     Dosage: 100 mg, unknown frequency
     Dates: start: 2012, end: 2012
  3. ZOLOFT [Suspect]
     Dosage: Unknown dose, unknown frequency
     Dates: start: 2012, end: 2012
  4. CRESTOR [Concomitant]
     Dosage: UNK
  5. FELDENE [Concomitant]
     Dosage: 10 mg, UNK
  6. FUROSEMIDE [Concomitant]
     Dosage: 80 mg, UNK
  7. POTASSIUM [Concomitant]
     Dosage: UNK
  8. VALIUM [Concomitant]
     Dosage: UNK
  9. ZOFRAN [Concomitant]
     Dosage: 4 mg, UNK
  10. METOPROLOL [Concomitant]
     Dosage: UNK
  11. PERCOCET [Concomitant]
     Dosage: UNK

REACTIONS (3)
  - Cardiac disorder [Unknown]
  - Coma [Recovered/Resolved]
  - Myocardial infarction [Unknown]
